FAERS Safety Report 9521946 (Version 1)
Quarter: 2013Q1

REPORT INFORMATION
  Report Type: Spontaneous
  Country: US (occurrence: None)
  Receive Date: 20130305
  Receipt Date: 20130305
  Transmission Date: 20140127
  Serious: Yes (Hospitalization, Other)
  Sender: FDA-Public Use
  Company Number: 163-21880-12080335

PATIENT
  Age: 75 Year
  Sex: Female
  Weight: 81.65 kg

DRUGS (11)
  1. REVLIMID (LENALIDOMIDE) (CAPSULES) [Suspect]
     Indication: PLASMA CELL MYELOMA
     Route: 048
     Dates: start: 20110720
  2. LEVOTHYROXINE(LEVOTHYROXINE)(UNKNOWN) [Concomitant]
  3. CLONAZEPAM(CLONAZEPAM)(UNKNOWN) [Concomitant]
  4. METFORMIN(METFORMIN)(UNKNOWN) [Concomitant]
  5. AMLODIPINE/BENZAPRIL/HCTZ(OTHER ANTIHYPERTENSIVES)(UNKNOWN) [Concomitant]
  6. OXYCODONE(OXYCODONE)(UNKNOWN) [Concomitant]
  7. KLOR-CON(POTASSIUM CHLORIDE)(UNKNOWN) [Concomitant]
  8. IRON(IRON)(UNKNOWN) [Concomitant]
  9. MULTIVITAMINS(MULTIVITAMINS)(UNKNOWN) [Concomitant]
  10. CALCIUM(CALCIUM)(UNKNOWN) [Concomitant]
  11. VITAMIN D(ERGOCALCIFEROL)(UNKNOWN) [Concomitant]

REACTIONS (2)
  - Bone neoplasm [None]
  - Tumour pain [None]
